FAERS Safety Report 22520331 (Version 1)
Quarter: 2023Q2

REPORT INFORMATION
  Report Type: Spontaneous
  Country: BE (occurrence: BE)
  Receive Date: 20230605
  Receipt Date: 20230605
  Transmission Date: 20230721
  Serious: Yes (Other)
  Sender: FDA-Public Use
  Company Number: BE-SA-2023SA165344

PATIENT
  Age: 64 Year
  Sex: Female

DRUGS (3)
  1. LEFLUNOMIDE [Suspect]
     Active Substance: LEFLUNOMIDE
     Indication: Rheumatoid arthritis
     Dosage: UNK
     Dates: start: 2007
  2. CORTICOSTEROID NOS [Concomitant]
     Active Substance: CORTICOSTEROID NOS
     Indication: Rheumatoid arthritis
     Dosage: UNK
     Dates: start: 2011
  3. ETANERCEPT [Concomitant]
     Active Substance: ETANERCEPT
     Indication: Rheumatoid arthritis
     Dosage: UNK
     Dates: start: 2011

REACTIONS (7)
  - Rheumatoid nodule [Unknown]
  - Ataxia [Unknown]
  - Dysmetria [Unknown]
  - Brain oedema [Unknown]
  - Rheumatoid lung [Unknown]
  - Pulmonary cavitation [Unknown]
  - Necrosis [Unknown]

NARRATIVE: CASE EVENT DATE: 20190101
